FAERS Safety Report 7899197 (Version 2)
Quarter: 2013Q1

REPORT INFORMATION
  Report Type: Spontaneous
  Country: MX (occurrence: MX)
  Receive Date: 20110414
  Receipt Date: 20130315
  Transmission Date: 20140127
  Serious: Yes (Death, Other)
  Sender: FDA-Public Use
  Company Number: PHHY2011MX30570

PATIENT
  Age: 95 Year
  Sex: Female

DRUGS (1)
  1. CO-DIOVAN [Suspect]
     Indication: HYPERTENSION
     Dosage: 2 DF, (80 MG VALS/12.5 MG HCT) PER DAY
     Route: 048

REACTIONS (4)
  - Respiratory arrest [Fatal]
  - Cerebral haemorrhage [Unknown]
  - Blood pressure increased [Unknown]
  - Dizziness [Unknown]
